FAERS Safety Report 9102596 (Version 1)
Quarter: 2013Q1

REPORT INFORMATION
  Report Type: Spontaneous
  Country: JP (occurrence: JP)
  Receive Date: 20130219
  Receipt Date: 20130219
  Transmission Date: 20140127
  Serious: Yes (Life-Threatening, Other)
  Sender: FDA-Public Use
  Company Number: JP-ASTELLAS-2013US001527

PATIENT
  Age: 84 Year
  Sex: Male
  Weight: 49 kg

DRUGS (15)
  1. TARCEVA [Suspect]
     Indication: LUNG ADENOCARCINOMA
     Dosage: 150 MG, UID/QD
     Route: 048
     Dates: start: 20121122, end: 20121125
  2. HERBESSER R [Concomitant]
     Indication: PRODUCT USED FOR UNKNOWN INDICATION
     Dosage: 100 MG, BID
     Route: 048
     Dates: start: 20000324
  3. BASEN [Concomitant]
     Indication: PRODUCT USED FOR UNKNOWN INDICATION
     Dosage: 0.2 MG, TID
     Route: 048
     Dates: start: 20020322, end: 20020401
  4. BASEN [Concomitant]
     Dosage: 0.3 MG, TID
     Route: 048
     Dates: start: 20020402, end: 20041106
  5. BASEN [Concomitant]
     Dosage: 0.2 MG, TID
     Route: 048
     Dates: start: 20081125
  6. TAKEPRON [Concomitant]
     Indication: PRODUCT USED FOR UNKNOWN INDICATION
     Dosage: 15 MG, UID/QD
     Route: 048
     Dates: start: 20040406
  7. KIPRES [Concomitant]
     Indication: PRODUCT USED FOR UNKNOWN INDICATION
     Dosage: 10 MG, UID/QD
     Route: 048
     Dates: start: 20041106
  8. AMARYL [Concomitant]
     Indication: PRODUCT USED FOR UNKNOWN INDICATION
     Dosage: 1 MG, UID/QD
     Route: 048
     Dates: start: 20050208, end: 20050613
  9. AMARYL [Concomitant]
     Dosage: 2 MG, BID
     Route: 048
     Dates: start: 20050614, end: 20071112
  10. AMARYL [Concomitant]
     Dosage: 3 MG, TID
     Route: 048
     Dates: start: 20071113
  11. WARFARIN [Concomitant]
     Indication: PRODUCT USED FOR UNKNOWN INDICATION
     Dosage: 3.5 MG, UID/QD
     Route: 048
     Dates: start: 20100824, end: 20110112
  12. WARFARIN [Concomitant]
     Dosage: 2.5 MG, UID/QD
     Route: 048
     Dates: start: 20110115
  13. VASOLAN                            /00014302/ [Concomitant]
     Indication: PRODUCT USED FOR UNKNOWN INDICATION
     Dosage: 40 MG, BID
     Route: 048
     Dates: start: 20110423
  14. HALFDIGOXIN [Concomitant]
     Indication: PRODUCT USED FOR UNKNOWN INDICATION
     Dosage: 0.125 MG, UID/QD
     Route: 048
     Dates: start: 20110423
  15. MUCODYNE [Concomitant]
     Indication: PRODUCT USED FOR UNKNOWN INDICATION
     Dosage: 500 MG, TID
     Route: 048
     Dates: start: 20120908

REACTIONS (3)
  - Hypoglycaemia [Recovered/Resolved]
  - Loss of consciousness [Unknown]
  - Interstitial lung disease [Unknown]
